FAERS Safety Report 11879232 (Version 1)
Quarter: 2015Q4

REPORT INFORMATION
  Report Type: Spontaneous
  Country: US (occurrence: US)
  Receive Date: 20151230
  Receipt Date: 20151230
  Transmission Date: 20160305
  Serious: No
  Sender: FDA-Public Use
  Company Number: US-PFIZER INC-2015455451

PATIENT
  Age: 65 Year
  Sex: Male
  Weight: 104 kg

DRUGS (2)
  1. SUTENT [Suspect]
     Active Substance: SUNITINIB MALATE
     Indication: RENAL CANCER METASTATIC
     Dosage: 50 MG, DAILY; CAPSULE BY MOUTH EVERY DAY
     Route: 048
     Dates: start: 20151020, end: 20151104
  2. SUTENT [Suspect]
     Active Substance: SUNITINIB MALATE
     Dosage: 50 MG DAILY; CAPSULE BY MOUTH
     Route: 048
     Dates: start: 20151116, end: 20151128

REACTIONS (8)
  - Blood pressure abnormal [Unknown]
  - Disease progression [Unknown]
  - Oral pain [Recovering/Resolving]
  - Mouth swelling [Recovering/Resolving]
  - Loose tooth [Unknown]
  - Toothache [Unknown]
  - Renal cancer metastatic [Unknown]
  - Headache [Recovered/Resolved]

NARRATIVE: CASE EVENT DATE: 20151020
